FAERS Safety Report 13456714 (Version 1)
Quarter: 2017Q2

REPORT INFORMATION
  Report Type: Report from Study
  Country: US (occurrence: US)
  Receive Date: 20170418
  Receipt Date: 20170418
  Transmission Date: 20170830
  Serious: Yes (Other)
  Sender: FDA-Public Use
  Company Number: US-TAKEDA-2017TUS007960

PATIENT
  Sex: Male
  Weight: 74.83 kg

DRUGS (1)
  1. VEDOLIZUMAB [Suspect]
     Active Substance: VEDOLIZUMAB
     Indication: POUCHITIS
     Dosage: UNK
     Route: 042
     Dates: start: 2015

REACTIONS (8)
  - Fall [Unknown]
  - Spinal operation [Unknown]
  - Arthritis [Not Recovered/Not Resolved]
  - Fatigue [Not Recovered/Not Resolved]
  - Knee operation [Unknown]
  - Sinusitis [Not Recovered/Not Resolved]
  - Limb operation [Unknown]
  - Product use in unapproved indication [Unknown]

NARRATIVE: CASE EVENT DATE: 2015
